FAERS Safety Report 5168791-2 (Version None)
Quarter: 2006Q4

REPORT INFORMATION
  Report Type: 
  Country: None (occurrence: None)
  Receive Date: 20061211
  Receipt Date: 20061130
  Transmission Date: 20070319
  Serious: Yes (Hospitalization)
  Sender: FDA-Public Use
  Company Number: JP-JNJFOC-20060902301

PATIENT
  Sex: Female

DRUGS (9)
  1. ITRIZOLE [Suspect]
     Indication: PULMONARY MYCOSIS
     Route: 048
     Dates: start: 20060822
  2. FUNGUARD [Suspect]
     Indication: DRUG USE FOR UNKNOWN INDICATION
     Route: 065
     Dates: end: 20060724
  3. MUCOSOLVAN [Concomitant]
     Indication: PULMONARY MYCOSIS
     Route: 048
  4. MUCODYNE [Concomitant]
     Indication: PULMONARY MYCOSIS
     Route: 048
  5. NOVORAPID [Concomitant]
     Indication: DIABETES MELLITUS
     Route: 058
  6. MAGMITT [Concomitant]
     Indication: CONSTIPATION
     Route: 048
  7. FASTIC [Concomitant]
     Indication: DIABETES MELLITUS
     Route: 048
  8. NOVOLIN R [Concomitant]
     Indication: DIABETES MELLITUS
     Route: 058
  9. NOVOLIN R [Concomitant]
     Dosage: NOVOLIN 30 R
     Route: 058

REACTIONS (2)
  - ALOPECIA [None]
  - BLOOD PRESSURE DECREASED [None]
